FAERS Safety Report 12967635 (Version 4)
Quarter: 2016Q4

REPORT INFORMATION
  Report Type: Spontaneous
  Country: JP (occurrence: JP)
  Receive Date: 20161123
  Receipt Date: 20161228
  Transmission Date: 20170207
  Serious: Yes (Hospitalization, Other)
  Sender: FDA-Public Use
  Company Number: JP-ROCHE-1858328

PATIENT
  Age: 45 Year
  Sex: Male

DRUGS (10)
  1. LUCENTIS [Suspect]
     Active Substance: RANIBIZUMAB
     Dosage: 0.05 ML, LEFT EYE, UNK
     Route: 031
     Dates: start: 20160112
  2. LUCENTIS [Suspect]
     Active Substance: RANIBIZUMAB
     Dosage: 0.05 ML, LEFT EYE,
     Route: 031
     Dates: start: 20160621
  3. EYLEA [Concomitant]
     Active Substance: AFLIBERCEPT
     Indication: PRODUCT USED FOR UNKNOWN INDICATION
     Dosage: UNK, RIGHT EYE, UNK
     Route: 031
     Dates: start: 20161026
  4. LUCENTIS [Suspect]
     Active Substance: RANIBIZUMAB
     Dosage: 0.05 ML, RIGHT EYE, UNK
     Route: 031
     Dates: start: 20151117
  5. LUCENTIS [Suspect]
     Active Substance: RANIBIZUMAB
     Indication: DIABETIC RETINAL OEDEMA
     Dosage: 0.05 ML, LEFT EYE, UNK
     Route: 031
     Dates: start: 20151110
  6. LUCENTIS [Suspect]
     Active Substance: RANIBIZUMAB
     Dosage: 0.05 ML, RIGHT EYE, UNK
     Route: 031
     Dates: start: 20151222
  7. LUCENTIS [Suspect]
     Active Substance: RANIBIZUMAB
     Dosage: 0.05 ML, RIGHT EYE, UNK
     Route: 031
     Dates: start: 20160419
  8. LUCENTIS [Suspect]
     Active Substance: RANIBIZUMAB
     Dosage: 0.05 ML, LEFT EYE, UNK
     Route: 031
     Dates: start: 20151215
  9. LUCENTIS [Suspect]
     Active Substance: RANIBIZUMAB
     Dosage: 0.05 ML, RIGHT EYE, UNK
     Route: 031
     Dates: start: 20160119
  10. LUCENTIS [Suspect]
     Active Substance: RANIBIZUMAB
     Dosage: 0.05 ML, LEFT EYE,
     Route: 031
     Dates: start: 20160412

REACTIONS (4)
  - Cerebral infarction [Recovered/Resolved]
  - Glaucoma [Not Recovered/Not Resolved]
  - Vitreous haemorrhage [Not Recovered/Not Resolved]
  - Limb discomfort [Unknown]

NARRATIVE: CASE EVENT DATE: 20160120
